FAERS Safety Report 23112277 (Version 1)
Quarter: 2023Q4

REPORT INFORMATION
  Report Type: Report from Study
  Country: US (occurrence: US)
  Receive Date: 20231026
  Receipt Date: 20231026
  Transmission Date: 20240110
  Serious: Yes (Hospitalization, Other)
  Sender: FDA-Public Use
  Company Number: US-ABBVIE-5466350

PATIENT
  Sex: Male

DRUGS (2)
  1. VENCLEXTA [Suspect]
     Active Substance: VENETOCLAX
     Indication: Chronic lymphocytic leukaemia
     Dosage: TAKE 1 TABLET BY MOUTH DAILY WITH FOOD AND WATER?STRENGTH: 50MG (7/BOX)?RESTARTED THERAPY?FIRST A...
     Route: 048
  2. VENCLEXTA [Suspect]
     Active Substance: VENETOCLAX
     Indication: Chronic lymphocytic leukaemia
     Dosage: TAKE 1 TABLET BY MOUTH DAILY WITH FOOD AND WATER?STRENGTH: 50MG (7/BOX)
     Route: 048
     Dates: end: 202309

REACTIONS (2)
  - Cholelithiasis [Recovering/Resolving]
  - Biliary obstruction [Recovering/Resolving]
